FAERS Safety Report 14966277 (Version 5)
Quarter: 2018Q3

REPORT INFORMATION
  Report Type: Spontaneous
  Country: KR (occurrence: KR)
  Receive Date: 20180603
  Receipt Date: 20180816
  Transmission Date: 20181010
  Serious: Yes (Hospitalization, Other)
  Sender: FDA-Public Use
  Company Number: KR-009507513-1804KOR000420

PATIENT
  Sex: Female

DRUGS (49)
  1. KEYTRUDA [Suspect]
     Active Substance: PEMBROLIZUMAB
     Dosage: UNK
     Dates: start: 20180718, end: 20180718
  2. FURIX [Concomitant]
     Active Substance: FUROSEMIDE
     Dosage: UNK
     Route: 048
     Dates: start: 20180605, end: 20180627
  3. FENTORA [Concomitant]
     Active Substance: FENTANYL CITRATE
     Dosage: UNK, BUCCAL TABLET
     Route: 048
     Dates: start: 20180809
  4. SODIUM CHLORIDE. [Concomitant]
     Active Substance: SODIUM CHLORIDE
     Dosage: 0.9% SODIUM CHLORIDE INJECTION 50 ML,UNK
     Dates: start: 20180605, end: 20180609
  5. SODIUM CHLORIDE. [Concomitant]
     Active Substance: SODIUM CHLORIDE
     Dosage: 0.9% SODIUM CHLORIDE INJECTION 50 ML, UNK
     Dates: start: 20180718, end: 20180718
  6. CJ PLASMA SOLUTION A [Concomitant]
     Dosage: UNK
     Dates: start: 20180604, end: 20180604
  7. CURAN [Concomitant]
     Active Substance: RANITIDINE HYDROCHLORIDE
     Dosage: 100 MG/4 ML
     Dates: start: 20180718, end: 20180718
  8. SUNGKWANG CALAMINE LOTION [Concomitant]
     Dosage: UNK
     Dates: start: 20180605
  9. SANCUSO [Concomitant]
     Active Substance: GRANISETRON
     Dosage: UNK
     Dates: start: 20180809
  10. KEYTRUDA [Suspect]
     Active Substance: PEMBROLIZUMAB
     Indication: BILE DUCT CANCER
     Dosage: UNK
     Dates: start: 20180228, end: 20180228
  11. KEYTRUDA [Suspect]
     Active Substance: PEMBROLIZUMAB
     Dosage: UNK
     Dates: start: 20180321, end: 20180321
  12. DUROGESIC [Concomitant]
     Active Substance: FENTANYL
     Dosage: UNK
     Dates: start: 20180621, end: 20180627
  13. NEURONTIN [Concomitant]
     Active Substance: GABAPENTIN
     Dosage: UNK
     Route: 048
     Dates: start: 20180605, end: 20180629
  14. NEURONTIN [Concomitant]
     Active Substance: GABAPENTIN
     Dosage: UNK
     Route: 048
     Dates: start: 20180718, end: 20180718
  15. PENIRAMIN [Concomitant]
     Dosage: UNK
     Dates: start: 20180718, end: 20180718
  16. SODIUM CHLORIDE. [Concomitant]
     Active Substance: SODIUM CHLORIDE
     Dosage: 0.9% SODIUM CHLORIDE INJECTION 50 ML,UNK
     Dates: start: 20180627, end: 20180627
  17. CURAN [Concomitant]
     Active Substance: RANITIDINE HYDROCHLORIDE
     Dosage: UNK
     Dates: start: 20180627, end: 20180627
  18. TRIDOL (TRAMADOL HYDROCHLORIDE) [Concomitant]
     Dosage: UNK
     Dates: start: 20180615, end: 20180627
  19. KEYTRUDA [Suspect]
     Active Substance: PEMBROLIZUMAB
     Dosage: UNK
     Dates: start: 20180507, end: 20180507
  20. KEYTRUDA [Suspect]
     Active Substance: PEMBROLIZUMAB
     Dosage: UNK
     Dates: start: 20180627, end: 20180627
  21. TACENOL [Concomitant]
     Dosage: 8 HOURS ER TABLET
     Route: 048
     Dates: start: 20180605, end: 20180627
  22. TACENOL [Concomitant]
     Dosage: 8 HOURS ER TAB
     Route: 048
     Dates: start: 20180809
  23. PENIRAMIN [Concomitant]
     Dosage: UNK
     Dates: start: 20180627, end: 20180627
  24. SODIUM CHLORIDE. [Concomitant]
     Active Substance: SODIUM CHLORIDE
     Dosage: 0.9% SODIUM CHLORIDE INJECTION
     Dates: start: 20180809
  25. SANCUSO [Concomitant]
     Active Substance: GRANISETRON
     Dosage: UNK
     Dates: start: 20180717, end: 20180717
  26. FURIX [Concomitant]
     Active Substance: FUROSEMIDE
     Dosage: UNK
     Route: 048
     Dates: start: 20180613, end: 20180622
  27. BEAROBAN [Concomitant]
     Dosage: UNK
     Dates: start: 20180605, end: 20180605
  28. NUCYNTA [Concomitant]
     Active Substance: TAPENTADOL HYDROCHLORIDE
     Dosage: ER TABLET
     Route: 048
     Dates: start: 20180718, end: 20180718
  29. VALCIVIR [Concomitant]
     Active Substance: VALACYCLOVIR HYDROCHLORIDE
     Dosage: UNK
     Route: 048
     Dates: start: 20180604, end: 20180604
  30. ZOYLEX [Concomitant]
     Dosage: UNK
     Dates: start: 20180605, end: 20180609
  31. PENIRAMIN [Concomitant]
     Dosage: UNK
     Dates: start: 20180809
  32. CURAN [Concomitant]
     Active Substance: RANITIDINE HYDROCHLORIDE
     Dosage: UNK
     Dates: start: 20180809
  33. KEYTRUDA [Suspect]
     Active Substance: PEMBROLIZUMAB
     Dosage: UNK
     Dates: start: 20180809
  34. ZITHROMAX [Concomitant]
     Active Substance: AZITHROMYCIN DIHYDRATE
     Dosage: UNK
     Route: 048
     Dates: start: 20180613, end: 20180622
  35. FURIX [Concomitant]
     Active Substance: FUROSEMIDE
     Dosage: UNK
     Route: 048
     Dates: start: 20180809
  36. XYZAL [Concomitant]
     Active Substance: LEVOCETIRIZINE DIHYDROCHLORIDE
     Dosage: UNK
     Route: 048
     Dates: start: 20180605, end: 20180617
  37. IRCODON [Concomitant]
     Active Substance: OXYCODONE HYDROCHLORIDE
     Dosage: UNK
     Route: 048
     Dates: start: 20180619, end: 20180619
  38. NUCYNTA [Concomitant]
     Active Substance: TAPENTADOL HYDROCHLORIDE
     Dosage: ER TABLET
     Route: 048
     Dates: start: 20180620, end: 20180629
  39. EPINEPHRINE (+) LIDOCAINE HYDROCHLORIDE [Concomitant]
     Active Substance: EPINEPHRINE\LIDOCAINE HYDROCHLORIDE
     Dosage: UNK
     Dates: start: 20180612, end: 20180612
  40. SANCUSO [Concomitant]
     Active Substance: GRANISETRON
     Dosage: UNK
     Dates: start: 20180610, end: 20180630
  41. KEYTRUDA [Suspect]
     Active Substance: PEMBROLIZUMAB
     Dosage: UNK
     Dates: start: 20180531, end: 20180531
  42. NEURONTIN [Concomitant]
     Active Substance: GABAPENTIN
     Dosage: UNK
     Route: 048
     Dates: start: 20180630, end: 20180630
  43. NUCYNTA [Concomitant]
     Active Substance: TAPENTADOL HYDROCHLORIDE
     Dosage: ER TABLET
     Route: 048
     Dates: start: 20180717, end: 20180718
  44. TACENOL [Concomitant]
     Dosage: 8 HOURS ER TABLET
     Route: 048
     Dates: start: 20180718, end: 20180718
  45. FENTORA [Concomitant]
     Active Substance: FENTANYL CITRATE
     Dosage: UNK, BUCCAL TABLET
     Route: 048
     Dates: start: 20180607, end: 20180618
  46. DUROGESIC [Concomitant]
     Active Substance: FENTANYL
     Dosage: UNK
     Dates: start: 20180606, end: 20180630
  47. DUROGESIC [Concomitant]
     Active Substance: FENTANYL
     Dosage: UNK
     Dates: start: 20180809
  48. NEURONTIN [Concomitant]
     Active Substance: GABAPENTIN
     Dosage: UNK
     Route: 048
     Dates: start: 20180717, end: 20180717
  49. NUCYNTA [Concomitant]
     Active Substance: TAPENTADOL HYDROCHLORIDE
     Dosage: ER TABLET
     Route: 048
     Dates: start: 20180630, end: 20180630

REACTIONS (3)
  - Product use in unapproved indication [Unknown]
  - Ascites [Unknown]
  - Adverse event [Unknown]

NARRATIVE: CASE EVENT DATE: 2018
